FAERS Safety Report 24606045 (Version 1)
Quarter: 2024Q4

REPORT INFORMATION
  Report Type: Report from Study
  Country: BE (occurrence: BE)
  Receive Date: 20241112
  Receipt Date: 20241112
  Transmission Date: 20250114
  Serious: Yes (Hospitalization)
  Sender: ABBVIE
  Company Number: BE-ABBVIE-5997133

PATIENT
  Sex: Male

DRUGS (5)
  1. CARBIDOPA\LEVODOPA [Suspect]
     Active Substance: CARBIDOPA\LEVODOPA
     Indication: Parkinson^s disease
     Dosage: MD: 7.0ML, CD: 3.5ML/H, ED: 3.00ML, DURING 16 HOURS
     Route: 050
     Dates: start: 20241022
  2. CARBIDOPA\LEVODOPA [Suspect]
     Active Substance: CARBIDOPA\LEVODOPA
     Dosage: MD: 7.0ML, CD: 3.5ML/H, ED: 3.00ML, DURING 16 HOURS
     Route: 050
     Dates: start: 20230801
  3. CARBIDOPA\LEVODOPA [Suspect]
     Active Substance: CARBIDOPA\LEVODOPA
     Dosage: MD: 7.0ML, CD: 3.6ML/H, ED: 3.00ML, DURING 16 HOURS
     Route: 050
     Dates: start: 20241002, end: 20241022
  4. CARBIDOPA\LEVODOPA [Suspect]
     Active Substance: CARBIDOPA\LEVODOPA
     Dosage: MD: 7.0ML, CD: 3.5ML/H, ED: 3.00ML, DURING 16 HOURS
     Route: 050
     Dates: start: 20240802, end: 20241002
  5. CARBIDOPA\LEVODOPA [Suspect]
     Active Substance: CARBIDOPA\LEVODOPA
     Dosage: MD: 7.0ML, CD: 3.8ML/H, ED: 3.00ML, DURING 16 HOURS
     Dates: start: 20240731, end: 20240802

REACTIONS (2)
  - General physical health deterioration [Unknown]
  - Device dislocation [Unknown]
